FAERS Safety Report 25446227 (Version 1)
Quarter: 2025Q2

REPORT INFORMATION
  Report Type: Spontaneous
  Country: US (occurrence: None)
  Receive Date: 20250617
  Receipt Date: 20250617
  Transmission Date: 20250716
  Serious: Yes (Death)
  Sender: FDA-CTU
  Company Number: None

PATIENT
  Age: 38 Year
  Sex: Male
  Weight: 61.7 kg

DRUGS (11)
  1. MYCOPHENOLIC ACID [Suspect]
     Active Substance: MYCOPHENOLIC ACID
     Indication: Transplant
     Dosage: FREQUENCY : TWICE A DAY;?
     Route: 048
     Dates: start: 20250125, end: 20250607
  2. ALENDRONATE [Concomitant]
     Active Substance: ALENDRONATE SODIUM
  3. AMLODIPINE [Concomitant]
     Active Substance: AMLODIPINE BESYLATE
  4. ASPIRIN [Concomitant]
     Active Substance: ASPIRIN
  5. BUMETANIDE [Concomitant]
     Active Substance: BUMETANIDE
  6. FAMOTIDINE [Concomitant]
     Active Substance: FAMOTIDINE
  7. INSULIN LISPRO [Concomitant]
     Active Substance: INSULIN LISPRO
  8. LANTUS SOLOSTAR PEN INJ [Concomitant]
  9. LOSARTAN [Concomitant]
     Active Substance: LOSARTAN
  10. ROSUVASTATIN [Concomitant]
     Active Substance: ROSUVASTATIN
  11. SILDENAFIL [Concomitant]
     Active Substance: SILDENAFIL

REACTIONS (1)
  - Cardiac failure [None]

NARRATIVE: CASE EVENT DATE: 20250607
